FAERS Safety Report 9607460 (Version 1)
Quarter: 2013Q4

REPORT INFORMATION
  Report Type: Spontaneous
  Country: US (occurrence: None)
  Receive Date: 20131007
  Receipt Date: 20131007
  Transmission Date: 20140711
  Serious: Yes (Hospitalization, Other)
  Sender: FDA-Public Use
  Company Number: 2013-003129

PATIENT
  Age: 80 Year
  Sex: Female

DRUGS (1)
  1. ESTRACE CREAM, 0.01% [Suspect]
     Indication: DEVICE THERAPY
     Route: 067

REACTIONS (3)
  - Hip fracture [None]
  - Urinary tract infection [None]
  - Kidney infection [None]
